FAERS Safety Report 9080492 (Version 1)
Quarter: 2013Q1

REPORT INFORMATION
  Report Type: Report from Study
  Country: US (occurrence: US)
  Receive Date: 20130130
  Receipt Date: 20130130
  Transmission Date: 20140127
  Serious: No
  Sender: FDA-Public Use
  Company Number: US-ABBOTT-12P-163-0973367-00

PATIENT
  Sex: Female
  Weight: 60.38 kg

DRUGS (9)
  1. HUMIRA 40 MG/0.8 ML PEN [Suspect]
     Indication: RHEUMATOID ARTHRITIS
     Dates: start: 201204, end: 20120802
  2. METHOTREXATE [Concomitant]
     Indication: RHEUMATOID ARTHRITIS
  3. FOLATE [Concomitant]
     Indication: VITAMIN SUPPLEMENTATION
  4. CELEBREX [Concomitant]
     Indication: RHEUMATOID ARTHRITIS
  5. PRILOSEC [Concomitant]
     Indication: DYSPEPSIA
  6. SIMVASTATIN [Concomitant]
     Indication: HYPERLIPIDAEMIA
  7. HCTZ [Concomitant]
     Indication: FLUID RETENTION
  8. VITAMINS [Concomitant]
     Indication: VITAMIN SUPPLEMENTATION
  9. B 6 COMPLEX [Concomitant]
     Indication: VITAMIN SUPPLEMENTATION

REACTIONS (4)
  - Abdominal discomfort [Recovered/Resolved]
  - Headache [Recovered/Resolved]
  - Injection site erythema [Recovered/Resolved]
  - Injection site pruritus [Recovered/Resolved]
